FAERS Safety Report 9198756 (Version 1)
Quarter: 2013Q1

REPORT INFORMATION
  Report Type: Spontaneous
  Country: US (occurrence: None)
  Receive Date: 20130327
  Receipt Date: 20130327
  Transmission Date: 20140127
  Serious: Yes (Hospitalization)
  Sender: FDA-Public Use
  Company Number: None

PATIENT
  Age: 66 Year
  Sex: Male
  Weight: 89.5 kg

DRUGS (16)
  1. GSK 1120212 [Suspect]
     Indication: THYROID CANCER METASTATIC
     Route: 048
     Dates: start: 20130130, end: 20130325
  2. TEMAZEPAM [Concomitant]
  3. LEVOTHYROXINE [Concomitant]
  4. HYDROCODONEACETOMINPHEN [Concomitant]
  5. CICLOPIROX [Concomitant]
  6. ALPRAZOLAM [Concomitant]
  7. CITALOPRAM [Concomitant]
  8. CARVEDILOL [Concomitant]
  9. LISINOPRIL [Concomitant]
  10. ESOMEPRAZOLE [Concomitant]
  11. TUSSION [Concomitant]
  12. PENNKINETIC ER [Concomitant]
  13. ERGOCALCIFERAOL [Concomitant]
  14. PSYLLIUM [Concomitant]
  15. AMITRIPTYLINE [Concomitant]
  16. CEVIMELINE [Concomitant]

REACTIONS (2)
  - Pleural effusion [None]
  - Jugular vein thrombosis [None]
